FAERS Safety Report 7962292-1 (Version None)
Quarter: 2011Q4

REPORT INFORMATION
  Report Type: 
  Country: None (occurrence: None)
  Receive Date: 20111206
  Receipt Date: 20111122
  Transmission Date: 20120403
  Serious: Yes (Other)
  Sender: FDA-Public Use
  Company Number: CIP11002529

PATIENT
  Age: 68 Year
  Sex: Female

DRUGS (7)
  1. BONIVA [Suspect]
     Indication: OSTEOPOROSIS
  2. VITAMINS NOS (VITAMINS NOS) [Concomitant]
  3. PREVACID [Concomitant]
  4. ALENDRONATE SODIUM [Suspect]
     Indication: OSTEOPOROSIS
     Dates: start: 20090401, end: 20101001
  5. ALBUTEROL [Concomitant]
  6. CALCIUM CARBONATE [Concomitant]
  7. ACTONEL [Suspect]
     Indication: OSTEOPOROSIS
     Dosage: 35 MG ONCE WEEKLY, ORAL
     Route: 048
     Dates: start: 20050501, end: 20081001

REACTIONS (12)
  - TOOTH INFECTION [None]
  - DENTAL DISCOMFORT [None]
  - OSTEOMYELITIS [None]
  - STREPTOCOCCAL INFECTION [None]
  - IMPAIRED HEALING [None]
  - BONE LOSS [None]
  - TOOTH LOSS [None]
  - TOOTH EXTRACTION [None]
  - OSTEONECROSIS OF JAW [None]
  - MEDICAL DEVICE REMOVAL [None]
  - PURULENT DISCHARGE [None]
  - STAPHYLOCOCCAL INFECTION [None]
